FAERS Safety Report 23477184 (Version 1)
Quarter: 2024Q1

REPORT INFORMATION
  Report Type: Report from Study
  Country: US (occurrence: US)
  Receive Date: 20240204
  Receipt Date: 20240204
  Transmission Date: 20240410
  Serious: No
  Sender: FDA-Public Use
  Company Number: US-EXELIXIS-CABO-23065233

PATIENT
  Age: 73 Year
  Sex: Male

DRUGS (10)
  1. CABOMETYX [Suspect]
     Active Substance: CABOZANTINIB S-MALATE
     Indication: Prostate cancer
     Dosage: 40 MG, QD
     Dates: start: 20230714
  2. CABOMETYX [Suspect]
     Active Substance: CABOZANTINIB S-MALATE
     Dosage: 20 MG, QD (1/2 TABLET OF 40 MG, QD)
     Dates: start: 20230801
  3. CABOMETYX [Suspect]
     Active Substance: CABOZANTINIB S-MALATE
     Dosage: 20 MG, QD
     Dates: start: 20230804
  4. TECENTRIQ [Suspect]
     Active Substance: ATEZOLIZUMAB
     Indication: Prostate cancer
     Dosage: UNK, Q3WEEKS
  5. HYDROCHLOROTHIAZIDE [Concomitant]
     Active Substance: HYDROCHLOROTHIAZIDE
  6. PREDNISONE [Concomitant]
     Active Substance: PREDNISONE
  7. ELIQUIS [Concomitant]
     Active Substance: APIXABAN
  8. XGEVA [Concomitant]
     Active Substance: DENOSUMAB
  9. DIPHENHYDRAMINE HYDROCHLORIDE\LIDOCAINE HYDROCHLORIDE\NYSTATIN [Concomitant]
     Active Substance: DIPHENHYDRAMINE HYDROCHLORIDE\LIDOCAINE HYDROCHLORIDE\NYSTATIN
     Dosage: UNK
  10. ALLOPURINOL [Concomitant]
     Active Substance: ALLOPURINOL

REACTIONS (14)
  - Ageusia [Unknown]
  - Initial insomnia [Recovered/Resolved]
  - Genital discolouration [Recovered/Resolved]
  - Blood calcium decreased [Unknown]
  - Asthenia [Unknown]
  - Stomatitis [Not Recovered/Not Resolved]
  - Weight decreased [Recovering/Resolving]
  - Diarrhoea [Recovered/Resolved]
  - Fall [Unknown]
  - Prostatic specific antigen increased [Unknown]
  - Abdominal distension [Unknown]
  - Decreased appetite [Recovering/Resolving]
  - Wrong technique in product usage process [Unknown]
  - Off label use [Unknown]

NARRATIVE: CASE EVENT DATE: 20230801
